FAERS Safety Report 15073006 (Version 8)
Quarter: 2019Q1

REPORT INFORMATION
  Report Type: Spontaneous
  Country: CA (occurrence: CA)
  Receive Date: 20180627
  Receipt Date: 20190225
  Transmission Date: 20190417
  Serious: Yes (Hospitalization)
  Sender: FDA-Public Use
  Company Number: CA-CELLTRION INC.-2018CA020919

PATIENT

DRUGS (13)
  1. INFLECTRA [Suspect]
     Active Substance: INFLIXIMAB-DYYB
     Dosage: UNK
     Dates: start: 20180921
  2. INFLECTRA [Suspect]
     Active Substance: INFLIXIMAB-DYYB
     Dosage: 400 MG, CYCLIC, EVERY 5 WEELS
     Route: 065
  3. INFLECTRA [Suspect]
     Active Substance: INFLIXIMAB-DYYB
     Indication: COLITIS ULCERATIVE
     Dosage: 10 MG/KG, CYCLIC  (EVERY 2, 6 WEEKS, THEN EVERY 8  WEEKS)
     Route: 042
     Dates: start: 20180525, end: 20180628
  4. INFLECTRA [Suspect]
     Active Substance: INFLIXIMAB-DYYB
     Dosage: 10 MG/KG, CYCLIC (EVERY 2,   6 WEEKS, THEN EVERY 8 WEEKS)
     Route: 042
     Dates: start: 20180601
  5. INFLECTRA [Suspect]
     Active Substance: INFLIXIMAB-DYYB
     Dosage: UNK
     Route: 065
     Dates: start: 20181018
  6. INFLECTRA [Suspect]
     Active Substance: INFLIXIMAB-DYYB
     Dosage: 10 MG/KG, CYCLIC  (EVERY 2, 6 WEEKS, THEN EVERY 8  WEEKS)
     Route: 042
     Dates: start: 20180601
  7. INFLECTRA [Suspect]
     Active Substance: INFLIXIMAB-DYYB
     Dosage: 480 MG, UNK
     Route: 065
     Dates: start: 20190207
  8. INFLECTRA [Suspect]
     Active Substance: INFLIXIMAB-DYYB
     Dosage: 10 MG/KG, UNK
     Route: 065
     Dates: start: 20180610
  9. INFLECTRA [Suspect]
     Active Substance: INFLIXIMAB-DYYB
     Dosage: 11.36 MG/KG, EVERY 4 WEEKS)
     Route: 042
  10. INFLECTRA [Suspect]
     Active Substance: INFLIXIMAB-DYYB
     Dosage: 10 MG/KG, CYCLIC(Q 4 WEEKS)
     Route: 042
     Dates: start: 20181213
  11. INFLECTRA [Suspect]
     Active Substance: INFLIXIMAB-DYYB
     Dosage: 10 MG/KG, CYCLIC (EVERY 2,  6 WEEKS, THEN EVERY 8 WEEKS)
     Route: 042
     Dates: start: 20180601
  12. INFLECTRA [Suspect]
     Active Substance: INFLIXIMAB-DYYB
     Dosage: 10 MG/KG, CYCLIC(Q 4 WEEKS)
     Route: 042
     Dates: start: 20181115
  13. PREDNISONE. [Concomitant]
     Active Substance: PREDNISONE
     Dosage: UNK
     Dates: start: 20180508

REACTIONS (7)
  - Condition aggravated [Unknown]
  - Prescribed overdose [Unknown]
  - Pain in extremity [Not Recovered/Not Resolved]
  - C-reactive protein increased [Unknown]
  - Incorrect dose administered [Unknown]
  - Drug level above therapeutic [Not Recovered/Not Resolved]
  - Product use issue [Unknown]

NARRATIVE: CASE EVENT DATE: 20180609
